FAERS Safety Report 4796355-9 (Version None)
Quarter: 2005Q4

REPORT INFORMATION
  Report Type: 
  Country: None (occurrence: None)
  Receive Date: 20051006
  Receipt Date: 20051006
  Transmission Date: 20060501
  Serious: No
  Sender: FDA-Public Use
  Company Number: None

PATIENT
  Age: 73 Year
  Sex: Female
  Weight: 67 kg

DRUGS (10)
  1. WARFARIN SODIUM [Suspect]
     Indication: PULMONARY EMBOLISM
     Dosage: 2.5 MG Q HS
  2. THIAMINE [Concomitant]
  3. FOLIC ACID [Concomitant]
  4. LANSOPRAZOLE [Concomitant]
  5. LEVOTHYROXINE [Concomitant]
  6. LEVOFLOXACIN [Concomitant]
  7. INSULIN [Concomitant]
  8. NITROFURANTOIN [Concomitant]
  9. HYDROCORTISONE [Concomitant]
  10. FUROSEMIDE [Concomitant]

REACTIONS (2)
  - HAEMOGLOBIN DECREASED [None]
  - INTERNATIONAL NORMALISED RATIO INCREASED [None]
